FAERS Safety Report 14623620 (Version 1)
Quarter: 2018Q1

REPORT INFORMATION
  Report Type: Report from Study
  Country: NL (occurrence: NL)
  Receive Date: 20180312
  Receipt Date: 20180312
  Transmission Date: 20180509
  Serious: Yes (Other)
  Sender: FDA-Public Use
  Company Number: NL-SUN PHARMACEUTICAL INDUSTRIES LTD-2018R1-164843

PATIENT
  Age: 57 Year
  Sex: Female

DRUGS (2)
  1. IMATINIB [Suspect]
     Active Substance: IMATINIB
     Indication: CHRONIC MYELOID LEUKAEMIA
     Dosage: 600 MG, DAILY
     Route: 048
  2. CYCLOSPORINE. [Interacting]
     Active Substance: CYCLOSPORINE
     Indication: CHRONIC MYELOID LEUKAEMIA
     Dosage: 300 (250-350) MG
     Route: 048

REACTIONS (2)
  - Drug level increased [Unknown]
  - Drug interaction [Unknown]
